FAERS Safety Report 18373755 (Version 1)
Quarter: 2020Q4

REPORT INFORMATION
  Report Type: Report from Study
  Country: US (occurrence: US)
  Receive Date: 20201012
  Receipt Date: 20201012
  Transmission Date: 20210114
  Serious: Yes (Hospitalization, Other)
  Sender: FDA-Public Use
  Company Number: US-PFIZER INC-2020363888

PATIENT
  Age: 79 Year
  Sex: Female
  Weight: 97.1 kg

DRUGS (9)
  1. DOXAZOSIN MESILATE [Suspect]
     Active Substance: DOXAZOSIN MESYLATE
     Dosage: UNK
     Dates: end: 2020
  2. TYVASO [Suspect]
     Active Substance: TREPROSTINIL
     Dosage: UNK
     Route: 055
     Dates: start: 2020
  3. ALYQ [Concomitant]
     Active Substance: TADALAFIL
     Dosage: UNK
  4. OPSUMIT [Concomitant]
     Active Substance: MACITENTAN
     Dosage: UNK
  5. TYVASO [Suspect]
     Active Substance: TREPROSTINIL
     Indication: PULMONARY ARTERIAL HYPERTENSION
     Dosage: UNK
     Route: 055
     Dates: start: 20200716
  6. TYVASO [Suspect]
     Active Substance: TREPROSTINIL
     Dosage: UNK, 4X/DAY ((18-54 UG (3-9 BREATHS))
     Route: 055
     Dates: start: 2020
  7. TYVASO [Suspect]
     Active Substance: TREPROSTINIL
     Dosage: UNK
     Route: 055
  8. TYVASO [Suspect]
     Active Substance: TREPROSTINIL
     Dosage: 36 UG, 3X/DAY (36 UG (6 BREATHS))
     Route: 055
     Dates: start: 2020, end: 2020
  9. ELIQUIS [Concomitant]
     Active Substance: APIXABAN
     Dosage: UNK

REACTIONS (8)
  - Pulse absent [Unknown]
  - Hypotension [Unknown]
  - Renal failure [Recovered/Resolved]
  - Diarrhoea [Unknown]
  - Arthralgia [Not Recovered/Not Resolved]
  - Decreased appetite [Unknown]
  - Dehydration [Unknown]
  - Headache [Unknown]

NARRATIVE: CASE EVENT DATE: 2020
